FAERS Safety Report 4702967-0 (Version None)
Quarter: 2005Q2

REPORT INFORMATION
  Report Type: 
  Country: None (occurrence: None)
  Receive Date: 20050627
  Receipt Date: 20050615
  Transmission Date: 20051028
  Serious: Yes (Other)
  Sender: FDA-Public Use
  Company Number: CHPA2005US01711

PATIENT
  Age: 29 Year
  Sex: Female
  Weight: 52.2 kg

DRUGS (4)
  1. TRANSDERM SCOP [Suspect]
     Indication: DIZZINESS
     Dosage: 1.5MG, Q72H, TRANSDERMAL
     Route: 062
     Dates: start: 20040923, end: 20041022
  2. TRANSDERM SCOP [Suspect]
     Indication: DIZZINESS
     Dosage: 1.5MG, Q72H, TRANSDERMAL
     Route: 062
     Dates: start: 20041101, end: 20041201
  3. VALIUM [Suspect]
     Dosage: 6 + 3 MG, QD, ORAL
     Route: 048
  4. VALIUM [Suspect]
     Dosage: 6 + 3 MG, QD, ORAL
     Route: 048

REACTIONS (5)
  - DEHYDRATION [None]
  - DIZZINESS [None]
  - DRUG DEPENDENCE [None]
  - NAUSEA [None]
  - VOMITING [None]
